FAERS Safety Report 18527922 (Version 3)
Quarter: 2021Q1

REPORT INFORMATION
  Report Type: Spontaneous
  Country: PT (occurrence: PT)
  Receive Date: 20201120
  Receipt Date: 20210113
  Transmission Date: 20210419
  Serious: Yes (Other)
  Sender: FDA-Public Use
  Company Number: NVSC2020PT310278

PATIENT
  Age: 56 Year
  Sex: Female

DRUGS (3)
  1. PALIPERIDONE. [Suspect]
     Active Substance: PALIPERIDONE
     Indication: DELUSION OF PARASITOSIS
     Dosage: UNK
     Route: 065
  2. CARIPRAZINE [Suspect]
     Active Substance: CARIPRAZINE
     Indication: DELUSION OF PARASITOSIS
     Dosage: UNK
     Route: 065
  3. RISPERIDONE. [Suspect]
     Active Substance: RISPERIDONE
     Indication: DELUSION OF PARASITOSIS
     Dosage: UNK
     Route: 065

REACTIONS (8)
  - Somnolence [Unknown]
  - Off label use [Unknown]
  - Delusion [Recovering/Resolving]
  - Hyperprolactinaemia [Unknown]
  - Agitation [Unknown]
  - Anosognosia [Recovering/Resolving]
  - Hypersomnia [Unknown]
  - Product use in unapproved indication [Unknown]
